FAERS Safety Report 16352392 (Version 1)
Quarter: 2019Q2

REPORT INFORMATION
  Report Type: Spontaneous
  Country: CA (occurrence: CA)
  Receive Date: 20190524
  Receipt Date: 20190524
  Transmission Date: 20190711
  Serious: Yes (Hospitalization, Other)
  Sender: FDA-Public Use
  Company Number: CA-TEVA-2019-CA-1052058

PATIENT
  Age: 55 Year
  Sex: Female

DRUGS (18)
  1. DESMOPRESSIN [Interacting]
     Active Substance: DESMOPRESSIN
     Dosage: 2.4 MILLIGRAM DAILY;
     Route: 048
  2. RABEPRAZOLE [Concomitant]
     Active Substance: RABEPRAZOLE
  3. DESMOPRESSIN [Suspect]
     Active Substance: DESMOPRESSIN
     Indication: DIABETES INSIPIDUS
     Dosage: 1.2 MILLIGRAM DAILY;
     Route: 048
  4. DESMOPRESSIN [Interacting]
     Active Substance: DESMOPRESSIN
     Indication: DIABETES INSIPIDUS
     Dosage: INTRA
     Route: 045
  5. HYDROMORPHONE [Interacting]
     Active Substance: HYDROMORPHONE
     Indication: PAIN
     Dosage: AS REQUIRED
     Route: 058
  6. SALBUTAMOL [Concomitant]
     Active Substance: ALBUTEROL
  7. DESMOPRESSIN [Interacting]
     Active Substance: DESMOPRESSIN
     Dosage: 1.6 MILLIGRAM DAILY;
     Route: 048
  8. DESMOPRESSIN [Interacting]
     Active Substance: DESMOPRESSIN
     Route: 045
  9. VASOPRESSIN INJECTION, USP [Concomitant]
     Active Substance: VASOPRESSIN
  10. IPRATROPIUM [Concomitant]
     Active Substance: IPRATROPIUM
  11. HYDROCORTISONE. [Concomitant]
     Active Substance: HYDROCORTISONE
  12. DOMPERIDONE [Concomitant]
     Active Substance: DOMPERIDONE
  13. SYMBICORT [Concomitant]
     Active Substance: BUDESONIDE\FORMOTEROL FUMARATE DIHYDRATE
  14. DICLOFENAC/MISOPROSTOL [Concomitant]
     Active Substance: DICLOFENAC SODIUM\MISOPROSTOL
  15. DESMOPRESSIN [Interacting]
     Active Substance: DESMOPRESSIN
     Dosage: 1.4 MILLIGRAM DAILY;
     Route: 048
  16. LEVOTHYROXINE. [Concomitant]
     Active Substance: LEVOTHYROXINE
  17. HYDROMORPHONE [Suspect]
     Active Substance: HYDROMORPHONE
     Indication: PAIN
     Route: 065
  18. PREDNISONE. [Concomitant]
     Active Substance: PREDNISONE

REACTIONS (2)
  - Drug interaction [Unknown]
  - Hyponatraemia [Unknown]
